FAERS Safety Report 8196288-4 (Version None)
Quarter: 2012Q1

REPORT INFORMATION
  Report Type: 
  Country: None (occurrence: None)
  Receive Date: 20120305
  Receipt Date: 20120305
  Transmission Date: 20120608
  Serious: Yes (Death, Hospitalization)
  Sender: FDA-Public Use
  Company Number: None

PATIENT
  Age: 76 Year
  Sex: Female

DRUGS (9)
  1. LUCENTIS [Suspect]
     Dosage: MONTHLY INTRAVITREAL
     Dates: start: 20100504, end: 20120301
  2. FOLIC ACID [Concomitant]
  3. PLAVIX [Concomitant]
  4. LETROZOLE [Concomitant]
  5. TOPROL-XL [Concomitant]
  6. TOPAMAX [Concomitant]
  7. SYNTHROID [Concomitant]
  8. ZOCOR [Concomitant]
  9. NEURONTIN [Concomitant]

REACTIONS (2)
  - PNEUMONIA [None]
  - GENERAL PHYSICAL HEALTH DETERIORATION [None]
